FAERS Safety Report 5708053-5 (Version None)
Quarter: 2008Q2

REPORT INFORMATION
  Report Type: 
  Country: None (occurrence: None)
  Receive Date: 20080417
  Receipt Date: 20080324
  Transmission Date: 20081010
  Serious: Yes (Death, Hospitalization)
  Sender: FDA-Public Use
  Company Number: US-BAXTER-2008BH002290

PATIENT
  Age: 68 Year
  Weight: 60 kg

DRUGS (1)
  1. DIANEAL [Suspect]
     Indication: PERITONEAL DIALYSIS
     Dosage: DOSE UNIT:UNKNOWN
     Route: 033
     Dates: end: 20080121

REACTIONS (7)
  - BRADYCARDIA [None]
  - CATHETER RELATED INFECTION [None]
  - COAGULOPATHY [None]
  - DEATH [None]
  - HYPERTENSION [None]
  - LOSS OF CONSCIOUSNESS [None]
  - RETROPERITONEAL HAEMORRHAGE [None]
